FAERS Safety Report 12979880 (Version 1)
Quarter: 2016Q4

REPORT INFORMATION
  Report Type: Report from Study
  Country: CO (occurrence: CO)
  Receive Date: 20161128
  Receipt Date: 20161128
  Transmission Date: 20170207
  Serious: Yes (Other)
  Sender: FDA-Public Use
  Company Number: CO-SA-2016SA216612

PATIENT
  Age: 39 Year
  Sex: Female

DRUGS (1)
  1. LEMTRADA [Suspect]
     Active Substance: ALEMTUZUMAB
     Indication: MULTIPLE SCLEROSIS
     Route: 041
     Dates: start: 20150904, end: 20150908

REACTIONS (2)
  - Blood thyroid stimulating hormone decreased [Unknown]
  - Leukopenia [Unknown]

NARRATIVE: CASE EVENT DATE: 20151112
